FAERS Safety Report 17482899 (Version 1)
Quarter: 2020Q1

REPORT INFORMATION
  Report Type: Spontaneous
  Country: US (occurrence: US)
  Receive Date: 20191011
  Receipt Date: 20191011
  Transmission Date: 20200409
  Serious: No
  Sender: FDA-Public Use
  Company Number: None

PATIENT
  Age: 27 Year
  Sex: Female

DRUGS (8)
  1. DUONEB [Concomitant]
     Active Substance: ALBUTEROL SULFATE\IPRATROPIUM BROMIDE
  2. Z-PACK [Concomitant]
     Active Substance: AZITHROMYCIN DIHYDRATE
  3. CBD/CBD OIL VAPE [Suspect]
     Active Substance: CANNABIDIOL\DEVICE\HERBALS
  4. AMMONIUM PERFLUOROOCTANOATE. [Concomitant]
     Active Substance: AMMONIUM PERFLUOROOCTANOATE
  5. ALBUTEROL INHALER [Concomitant]
     Active Substance: ALBUTEROL
  6. JUUL [DEVICE\NICOTINE] [Suspect]
     Active Substance: DEVICE\NICOTINE
  7. PREDNISONE. [Concomitant]
     Active Substance: PREDNISONE
  8. NORCO CANBIS [Concomitant]

REACTIONS (2)
  - Cough [None]
  - Dyspnoea [None]
